FAERS Safety Report 7792370 (Version 3)
Quarter: 2013Q4

REPORT INFORMATION
  Report Type: Spontaneous
  Country: GB (occurrence: GB)
  Receive Date: 20110131
  Receipt Date: 20131009
  Transmission Date: 20140711
  Serious: Yes (Death, Hospitalization)
  Sender: FDA-Public Use
  Company Number: US-RANBAXY-2011US-41356

PATIENT
  Age: 80 Year
  Sex: Female

DRUGS (1)
  1. PARACETAMOL/ACETAMINOPHEN [Suspect]
     Indication: PRODUCT USED FOR UNKNOWN INDICATION
     Dosage: UNK
     Route: 048

REACTIONS (7)
  - Toxicity to various agents [Fatal]
  - Intentional overdose [Unknown]
  - Metabolic acidosis [Unknown]
  - Coma [Unknown]
  - Vomiting [Unknown]
  - Hypotension [Unknown]
  - Blood glucose abnormal [Unknown]
